FAERS Safety Report 16373460 (Version 1)
Quarter: 2019Q2

REPORT INFORMATION
  Report Type: Spontaneous
  Country: US (occurrence: US)
  Receive Date: 20190530
  Receipt Date: 20190530
  Transmission Date: 20190711
  Serious: Yes (Other)
  Sender: FDA-Public Use
  Company Number: US-ELI_LILLY_AND_COMPANY-US201905010684

PATIENT
  Age: 82 Year
  Sex: Female

DRUGS (7)
  1. ALPRAZOLAM. [Concomitant]
     Active Substance: ALPRAZOLAM
     Indication: PRODUCT USED FOR UNKNOWN INDICATION
  2. XGEVA [Concomitant]
     Active Substance: DENOSUMAB
     Indication: PRODUCT USED FOR UNKNOWN INDICATION
  3. VITAMIN D [COLECALCIFEROL] [Concomitant]
     Active Substance: CHOLECALCIFEROL
     Indication: PRODUCT USED FOR UNKNOWN INDICATION
  4. TURMERIC CURCUMIN [CURCUMA LONGA] [Concomitant]
     Indication: PRODUCT USED FOR UNKNOWN INDICATION
  5. VERZENIO [Suspect]
     Active Substance: ABEMACICLIB
     Indication: NEOPLASM MALIGNANT
     Dosage: 200 MG, BID
     Route: 048
     Dates: start: 20181109
  6. BUPROPION. [Concomitant]
     Active Substance: BUPROPION
     Indication: PRODUCT USED FOR UNKNOWN INDICATION
  7. ONDANSETRON [Concomitant]
     Active Substance: ONDANSETRON
     Indication: PRODUCT USED FOR UNKNOWN INDICATION

REACTIONS (6)
  - Fatigue [Unknown]
  - Asthenia [Unknown]
  - Nausea [Unknown]
  - Headache [Unknown]
  - Diarrhoea [Unknown]
  - Pain [Unknown]

NARRATIVE: CASE EVENT DATE: 20181115
